FAERS Safety Report 25219909 (Version 1)
Quarter: 2025Q2

REPORT INFORMATION
  Report Type: Spontaneous
  Country: US (occurrence: US)
  Receive Date: 20250421
  Receipt Date: 20250421
  Transmission Date: 20250717
  Serious: Yes (Hospitalization, Other)
  Sender: BRISTOL-MYERS SQUIBB COMPANY
  Company Number: US-BRISTOL-MYERS SQUIBB COMPANY-2025-056856

PATIENT
  Age: 87 Year
  Sex: Male

DRUGS (2)
  1. APIXABAN [Suspect]
     Active Substance: APIXABAN
     Indication: Pulmonary embolism
  2. ASPIRIN [Suspect]
     Active Substance: ASPIRIN
     Indication: Pulmonary embolism

REACTIONS (1)
  - Gastrointestinal haemorrhage [Unknown]
